FAERS Safety Report 9254573 (Version 1)
Quarter: 2013Q2

REPORT INFORMATION
  Report Type: Report from Study
  Country: JP (occurrence: JP)
  Receive Date: 20130425
  Receipt Date: 20130425
  Transmission Date: 20140414
  Serious: Yes (Other)
  Sender: FDA-Public Use
  Company Number: JP-SANOFI-AVENTIS-2013SA040812

PATIENT
  Sex: Female

DRUGS (2)
  1. OXALIPLATIN [Suspect]
     Indication: CERVIX CARCINOMA
     Dosage: DISSOLVED IN 250 ML OF 5% GLUCOSE ADMINISTERED BY DRIP INFUSION OVER 120 MIN ON DAY 1
     Route: 041
  2. GIMERACIL/OTERACIL POTASSIUM/TEGAFUR [Suspect]
     Indication: CERVIX CARCINOMA
     Dosage: 80-120 MG/BODY/DAY,14 CONSECUTIVE DAYS (FROM EVENING OF DAY 1 UNTIL MORNING OF DAY 15),21 DAY CYCLE
     Route: 048

REACTIONS (1)
  - Female genital tract fistula [Unknown]
